FAERS Safety Report 9826917 (Version 2)
Quarter: 2014Q1

REPORT INFORMATION
  Report Type: Spontaneous
  Country: US (occurrence: None)
  Receive Date: 20140115
  Receipt Date: 20140228
  Transmission Date: 20141002
  Serious: Yes (Hospitalization)
  Sender: FDA-Public Use
  Company Number: 20130761

PATIENT
  Age: 41 Year
  Sex: Female
  Weight: 75 kg

DRUGS (8)
  1. VENOFER [Suspect]
     Indication: NEPHROGENIC ANAEMIA
     Route: 042
     Dates: start: 20131217, end: 20131217
  2. EPOGEN [Suspect]
     Route: 042
     Dates: start: 20131217, end: 20131217
  3. HECTEROL [Suspect]
     Route: 042
     Dates: start: 20131217, end: 20131217
  4. FRESENIUS DIALYZER, UNKNOWN UNKNOWN UNK/UNK [Concomitant]
  5. FRESNIUS NORMAL SALINE, UNKNOWN UNKNOWN UNK/UNK [Concomitant]
  6. FRESENIUS BLOOD LINES, UNKNOWN UNKNOWN UNK/UNK [Concomitant]
  7. GRANUFLO, UNKNOWN UNK/UNK [Concomitant]
  8. NATURALYTE, UNKNOWN UNKNOWN UNK/UNK [Concomitant]

REACTIONS (5)
  - Hypotension [None]
  - Syncope [None]
  - Depressed level of consciousness [None]
  - Blood glucose abnormal [None]
  - Hypertension [None]
